FAERS Safety Report 4535317-3 (Version None)
Quarter: 2004Q4

REPORT INFORMATION
  Report Type: 
  Country: None (occurrence: None)
  Receive Date: 20041214
  Receipt Date: 20041008
  Transmission Date: 20050328
  Serious: No
  Sender: FDA-Public Use
  Company Number: 2004238159US

PATIENT
  Age: 73 Year
  Sex: Male
  Weight: 76.6 kg

DRUGS (3)
  1. BEXTRA [Suspect]
     Indication: ARTHRITIS
     Dosage: 20 MG, QD, UNK
     Route: 065
  2. NEXIUM [Concomitant]
  3. ASPIRIN [Concomitant]

REACTIONS (1)
  - PEMPHIGUS [None]
